FAERS Safety Report 7720201-4 (Version None)
Quarter: 2011Q3

REPORT INFORMATION
  Report Type: 
  Country: None (occurrence: None)
  Receive Date: 20110826
  Receipt Date: 20110826
  Transmission Date: 20111222
  Serious: Yes (Hospitalization)
  Sender: FDA-Public Use
  Company Number: None

PATIENT
  Sex: Male

DRUGS (2)
  1. ACEBUTOLOL [Suspect]
     Indication: CORONARY ARTERY DISEASE
     Dosage: 200MG QD PO
     Route: 048
     Dates: start: 20030307
  2. ACEBUTOLOL [Suspect]
     Indication: VENTRICULAR TACHYCARDIA
     Dosage: 200MG QD PO
     Route: 048
     Dates: start: 20030307

REACTIONS (2)
  - TACHYCARDIA [None]
  - PRODUCT SUBSTITUTION ISSUE [None]
